FAERS Safety Report 18559696 (Version 1)
Quarter: 2020Q4

REPORT INFORMATION
  Report Type: Spontaneous
  Country: US (occurrence: US)
  Receive Date: 20201127
  Receipt Date: 20201127
  Transmission Date: 20210114
  Serious: Yes (Death)
  Sender: FDA-Public Use
  Company Number: None

PATIENT
  Age: 73 Year
  Sex: Male

DRUGS (2)
  1. POMALYST [Concomitant]
     Active Substance: POMALIDOMIDE
     Dosage: ?          OTHER ROUTE:X21/28D?
     Dates: start: 20190727, end: 202002
  2. POMALYST [Suspect]
     Active Substance: POMALIDOMIDE
     Indication: PLASMA CELL MYELOMA
     Dosage: ?          OTHER FREQUENCY:QD X21/28D;?
     Route: 048
     Dates: start: 20180320

REACTIONS (6)
  - Apnoea [None]
  - Pneumonia [None]
  - Bronchitis [None]
  - Pyrexia [None]
  - Respiratory distress [None]
  - Respiratory failure [None]

NARRATIVE: CASE EVENT DATE: 20200419
